FAERS Safety Report 9630766 (Version 2)
Quarter: 2013Q4

REPORT INFORMATION
  Report Type: Spontaneous
  Country: US (occurrence: None)
  Receive Date: 20131016
  Receipt Date: 20131204
  Transmission Date: 20140711
  Serious: Yes (Other)
  Sender: FDA-Public Use
  Company Number: 2013P1019983

PATIENT
  Age: 64 Year
  Sex: Male
  Weight: 97.98 kg

DRUGS (4)
  1. INFUMORPH [Suspect]
     Indication: PAIN
     Dates: start: 20130821, end: 20130821
  2. INFUMORPH [Suspect]
     Indication: SPINAL PAIN
     Dates: start: 20130821, end: 20130821
  3. ASPIRIN [Concomitant]
  4. UNSPECIFIED ANTIBIOTICS [Concomitant]

REACTIONS (8)
  - Drug ineffective [None]
  - Catheter site extravasation [None]
  - Incision site pain [None]
  - Procedural pain [None]
  - Implant site extravasation [None]
  - Meningitis [None]
  - Dermatitis [None]
  - Device malfunction [None]
